FAERS Safety Report 5684505-1 (Version None)
Quarter: 2008Q1

REPORT INFORMATION
  Report Type: 
  Country: None (occurrence: None)
  Receive Date: 20080328
  Receipt Date: 20080313
  Transmission Date: 20080703
  Serious: Yes (Death)
  Sender: FDA-Public Use
  Company Number: US-ROCHE-551865

PATIENT
  Age: 41 Year
  Sex: Female
  Weight: 90.3 kg

DRUGS (14)
  1. PEG-INTERFERON ALFA 2A (RO 25-8310) [Suspect]
     Indication: HEPATITIS C
     Route: 058
     Dates: start: 20060619, end: 20080302
  2. RIBAVIRIN [Suspect]
     Indication: HEPATITIS C
     Route: 048
     Dates: start: 20060619, end: 20080302
  3. PROGRAF [Concomitant]
     Dates: start: 20070304, end: 20080302
  4. ARANESP [Concomitant]
     Dates: start: 20071101, end: 20080302
  5. PRILOSEC [Concomitant]
     Dates: start: 20070308, end: 20080302
  6. ACTIGALL [Concomitant]
     Dates: start: 20070303, end: 20080302
  7. DAPSONE [Concomitant]
     Dates: start: 20070323, end: 20080302
  8. VIVELLE [Concomitant]
     Dates: start: 20070307, end: 20080302
  9. ASPIRIN [Concomitant]
     Dates: start: 20070308, end: 20080302
  10. AMBIEN [Concomitant]
     Dates: start: 20070306, end: 20080301
  11. EFFEXOR XR [Concomitant]
     Dates: start: 20070601, end: 20080302
  12. METOPROLOL TARTRATE [Concomitant]
     Dates: start: 20071113, end: 20080302
  13. CHLORTHALIDONE [Concomitant]
     Dates: start: 20071113, end: 20080302
  14. COMPAZINE [Concomitant]
     Dates: start: 20070813, end: 20080302

REACTIONS (1)
  - DEATH [None]
